FAERS Safety Report 5947854-5 (Version None)
Quarter: 2008Q4

REPORT INFORMATION
  Report Type: 
  Country: None (occurrence: None)
  Receive Date: 20081110
  Receipt Date: 20081110
  Transmission Date: 20090506
  Serious: No
  Sender: FDA-Public Use
  Company Number: None

PATIENT
  Age: 82 Year
  Sex: Female

DRUGS (1)
  1. DILAUDID [Suspect]
     Dosage: 1 MG Q 4 HOURS IV PIGGYBACK
     Route: 042
     Dates: start: 20081107, end: 20081107

REACTIONS (3)
  - HYPOTENSION [None]
  - INJECTION SITE ERYTHEMA [None]
  - NAUSEA [None]
